FAERS Safety Report 25439873 (Version 1)
Quarter: 2025Q2

REPORT INFORMATION
  Report Type: Spontaneous
  Country: US (occurrence: US)
  Receive Date: 20250616
  Receipt Date: 20250616
  Transmission Date: 20250717
  Serious: Yes (Death, Other)
  Sender: LUPIN
  Company Number: US-LUPIN PHARMACEUTICALS INC.-2025-04876

PATIENT
  Age: 81 Year
  Sex: Male

DRUGS (6)
  1. FLUCYTOSINE [Suspect]
     Active Substance: FLUCYTOSINE
     Indication: Acanthamoeba infection
     Dosage: 2000 MILLIGRAM, QD
     Route: 065
  2. VORICONAZOLE [Suspect]
     Active Substance: VORICONAZOLE
     Indication: Acanthamoeba infection
     Route: 065
  3. VORICONAZOLE [Suspect]
     Active Substance: VORICONAZOLE
     Route: 065
  4. SULFADIAZINE [Suspect]
     Active Substance: SULFADIAZINE
     Indication: Acanthamoeba infection
     Dosage: 1500 MILLIGRAM, Q6+8H
     Route: 065
  5. MILTEFOSINE [Suspect]
     Active Substance: MILTEFOSINE
     Indication: Acanthamoeba infection
     Dosage: 50 MILLIGRAM, TID (THREE TIMES DAILY)
     Route: 065
  6. Immune globulin [Concomitant]
     Indication: Hypogammaglobulinaemia

REACTIONS (3)
  - Renal failure [Fatal]
  - Drug ineffective for unapproved indication [Unknown]
  - Off label use [Unknown]
